FAERS Safety Report 15129498 (Version 1)
Quarter: 2018Q3

REPORT INFORMATION
  Report Type: Spontaneous
  Country: US (occurrence: US)
  Receive Date: 20180615
  Receipt Date: 20180615
  Transmission Date: 20181010
  Serious: Yes (Hospitalization)
  Sender: FDA-Public Use
  Company Number: None

PATIENT
  Age: 76 Year
  Sex: Male

DRUGS (6)
  1. GENERLAC [Concomitant]
     Active Substance: LACTULOSE
  2. AMLODIPINE [Concomitant]
     Active Substance: AMLODIPINE BESYLATE
  3. CEFDINIR. [Concomitant]
     Active Substance: CEFDINIR
  4. METOPROLOL. [Concomitant]
     Active Substance: METOPROLOL
  5. GENGRAF [Suspect]
     Active Substance: CYCLOSPORINE
     Indication: HYPERTENSION
     Route: 048
  6. LOSARTAN. [Concomitant]
     Active Substance: LOSARTAN

REACTIONS (1)
  - Urinary tract infection [None]
